FAERS Safety Report 9191238 (Version 1)
Quarter: 2013Q1

REPORT INFORMATION
  Report Type: Spontaneous
  Country: US (occurrence: US)
  Receive Date: 20130326
  Receipt Date: 20130326
  Transmission Date: 20140127
  Serious: No
  Sender: FDA-Public Use
  Company Number: US-ASTRAZENECA-2013SE16502

PATIENT
  Age: 65 Year
  Sex: Male

DRUGS (3)
  1. BRILINTA [Suspect]
     Indication: ACUTE CORONARY SYNDROME
     Route: 048
     Dates: start: 20130221, end: 20130222
  2. EFFIENT [Concomitant]
  3. ZANAX [Concomitant]
     Dates: end: 2013

REACTIONS (1)
  - Rash [Not Recovered/Not Resolved]
